FAERS Safety Report 7153422-2 (Version None)
Quarter: 2010Q4

REPORT INFORMATION
  Report Type: 
  Country: None (occurrence: None)
  Receive Date: 20101213
  Receipt Date: 20101208
  Transmission Date: 20110411
  Serious: Yes (Life-Threatening)
  Sender: FDA-Public Use
  Company Number: A0898601A

PATIENT
  Age: 69 Year
  Sex: Male

DRUGS (13)
  1. PROMACTA [Suspect]
     Indication: IDIOPATHIC THROMBOCYTOPENIC PURPURA
     Dosage: 50MG PER DAY
     Route: 048
     Dates: start: 20101124
  2. ZOCOR [Concomitant]
  3. FLUCONAZOLE [Concomitant]
  4. XALATAN [Concomitant]
  5. PREDNISONE [Concomitant]
  6. ATACAND [Concomitant]
  7. LIPITOR [Concomitant]
  8. COREG [Concomitant]
  9. INSPRA [Concomitant]
  10. ALTACE [Concomitant]
  11. FOLIC ACID [Concomitant]
  12. FLOMAX [Concomitant]
  13. NEXIUM [Concomitant]

REACTIONS (1)
  - PLATELET COUNT DECREASED [None]
